FAERS Safety Report 4463509-0 (Version None)
Quarter: 2004Q3

REPORT INFORMATION
  Report Type: 
  Country: None (occurrence: None)
  Receive Date: 20040930
  Receipt Date: 20040922
  Transmission Date: 20050211
  Serious: Yes (Death)
  Sender: FDA-Public Use
  Company Number: NO-MERCK-0409NOR00021

PATIENT
  Age: 99 Year
  Sex: Female

DRUGS (8)
  1. ACETAMINOPHEN [Concomitant]
     Indication: ARTHRALGIA
     Route: 048
  2. CIMETIDINE [Concomitant]
     Indication: ARTHRALGIA
     Route: 048
  3. CLONAZEPAM [Concomitant]
     Indication: ARTHRALGIA
     Route: 048
  4. DIPYRONE [Concomitant]
     Indication: ARTHRALGIA
     Route: 048
  5. DIPYRONE [Concomitant]
     Route: 048
  6. ESTRIOL [Concomitant]
     Indication: HORMONE LEVEL ABNORMAL
     Route: 048
  7. OXAZEPAM [Concomitant]
     Route: 048
  8. VIOXX [Suspect]
     Indication: ARTHRALGIA
     Route: 048
     Dates: start: 20040401

REACTIONS (3)
  - DUODENAL ULCER HAEMORRHAGE [None]
  - HAEMATEMESIS [None]
  - MELAENA [None]
